FAERS Safety Report 9585832 (Version 1)
Quarter: 2013Q4

REPORT INFORMATION
  Report Type: Spontaneous
  Country: US (occurrence: None)
  Receive Date: 20131001
  Receipt Date: 20131001
  Transmission Date: 20140711
  Serious: Yes (Other)
  Sender: FDA-Public Use
  Company Number: 2013-US-000998

PATIENT
  Age: 32 Year
  Sex: Female
  Weight: 52.6 kg

DRUGS (1)
  1. XYREM [Suspect]
     Indication: PRODUCT USED FOR UNKNOWN INDICATION
     Dates: start: 20130905, end: 201309

REACTIONS (5)
  - Cognitive disorder [None]
  - Memory impairment [None]
  - Condition aggravated [None]
  - Impaired work ability [None]
  - Dysphemia [None]
